FAERS Safety Report 12381834 (Version 1)
Quarter: 2016Q2

REPORT INFORMATION
  Report Type: Spontaneous
  Country: ES (occurrence: ES)
  Receive Date: 20160518
  Receipt Date: 20160518
  Transmission Date: 20160815
  Serious: Yes (Hospitalization)
  Sender: FDA-Public Use
  Company Number: ES-SUPERNUS PHARMACEUTICALS, INC.-2016SUP00097

PATIENT
  Age: 72 Year
  Sex: Female

DRUGS (1)
  1. TOPIRAMATE. [Suspect]
     Active Substance: TOPIRAMATE
     Indication: PAIN
     Dosage: 250 MG, 1X/DAY
     Route: 065

REACTIONS (4)
  - Sepsis [Unknown]
  - Nephrolithiasis [Unknown]
  - Renal failure [Unknown]
  - Hydronephrosis [Unknown]
